FAERS Safety Report 19123271 (Version 1)
Quarter: 2021Q2

REPORT INFORMATION
  Report Type: Spontaneous
  Country: CA (occurrence: CA)
  Receive Date: 20210412
  Receipt Date: 20210412
  Transmission Date: 20210717
  Serious: Yes (Hospitalization, Other)
  Sender: FDA-Public Use
  Company Number: CA-MYLANLABS-2021M1021669

PATIENT
  Age: 72 Year
  Sex: Male

DRUGS (12)
  1. VALPROIC ACID. [Suspect]
     Active Substance: VALPROIC ACID
     Indication: PRODUCT USED FOR UNKNOWN INDICATION
     Dosage: UNK
  2. ENTRESTO [Concomitant]
     Active Substance: SACUBITRIL\VALSARTAN
     Dosage: UNK
  3. APO FUROSEMIDE [Concomitant]
     Active Substance: FUROSEMIDE
     Dosage: UNK
  4. BISOPROLOL SANDOZ [Concomitant]
     Active Substance: BISOPROLOL
     Dosage: UNK
  5. TOLOXIN                            /00017701/ [Concomitant]
     Dosage: UNK
  6. DIVALPROEX [Concomitant]
     Active Substance: DIVALPROEX SODIUM
     Dosage: UNK
  7. PMS ATORVASTATIN [Concomitant]
     Dosage: UNK
  8. AMIODARONE SANDOZ [Concomitant]
     Active Substance: AMIODARONE
     Dosage: UNK
  9. JAMP ASA [Concomitant]
     Active Substance: ASPIRIN
     Dosage: UNK
  10. QUETIAPINE SANDOZ [Concomitant]
     Active Substance: QUETIAPINE
     Dosage: UNK
  11. TYLENOL [Concomitant]
     Active Substance: ACETAMINOPHEN
     Dosage: UNK
  12. XARELTO [Concomitant]
     Active Substance: RIVAROXABAN
     Dosage: UNK

REACTIONS (8)
  - Overdose [Unknown]
  - Weight decreased [Unknown]
  - Bicytopenia [Unknown]
  - Decreased appetite [Unknown]
  - Orthostatic hypotension [Unknown]
  - Hypoalbuminaemia [Unknown]
  - General physical health deterioration [Unknown]
  - Syncope [Unknown]
